FAERS Safety Report 9742711 (Version 2)
Quarter: 2013Q4

REPORT INFORMATION
  Report Type: Spontaneous
  Country: US (occurrence: US)
  Receive Date: 20131210
  Receipt Date: 20131210
  Transmission Date: 20140711
  Serious: Yes (Other)
  Sender: FDA-Public Use
  Company Number: US-GILEAD-2009-0025738

PATIENT
  Sex: Male
  Weight: 78.92 kg

DRUGS (12)
  1. LETAIRIS [Suspect]
     Indication: PULMONARY ARTERIAL HYPERTENSION
     Route: 048
     Dates: start: 20090514, end: 20091120
  2. COREG [Concomitant]
  3. FUROSEMIDE [Concomitant]
  4. WARFARIN [Concomitant]
  5. PRAVASTATIN [Concomitant]
  6. ASPIRIN [Concomitant]
  7. SPIRIVA [Concomitant]
  8. ALLOPURINOL [Concomitant]
  9. METOLAZONE [Concomitant]
  10. POTASSIUM CHLORIDE [Concomitant]
  11. DOXYCYCLINE [Concomitant]
  12. SYNTHROID [Concomitant]

REACTIONS (1)
  - Therapeutic response decreased [Unknown]
